FAERS Safety Report 20008400 (Version 1)
Quarter: 2021Q4

REPORT INFORMATION
  Report Type: Spontaneous
  Country: TR (occurrence: TR)
  Receive Date: 20211029
  Receipt Date: 20211029
  Transmission Date: 20220303
  Serious: Yes (Hospitalization)
  Sender: FDA-Public Use
  Company Number: TR-ABBVIE-21K-161-4139246-00

PATIENT
  Age: 57 Year
  Sex: Male
  Weight: 68 kg

DRUGS (4)
  1. CARBIDOPA\LEVODOPA [Suspect]
     Active Substance: CARBIDOPA\LEVODOPA
     Indication: Parkinson^s disease
     Dosage: MORNING DOSE(ML): 6.00 CONTINUES DOSE(ML):2.60 EXTRA DOSE(ML):1.00
     Route: 050
     Dates: start: 20160824
  2. CARBIDOPA\LEVODOPA [Suspect]
     Active Substance: CARBIDOPA\LEVODOPA
  3. BENSERAZIDE HYDROCHLORIDE\LEVODOPA [Concomitant]
     Active Substance: BENSERAZIDE HYDROCHLORIDE\LEVODOPA
     Indication: Parkinson^s disease
     Route: 048
     Dates: start: 2014
  4. AMANTADINE SULFATE [Concomitant]
     Active Substance: AMANTADINE SULFATE
     Indication: Parkinson^s disease
     Route: 048
     Dates: start: 2014

REACTIONS (2)
  - Suicide attempt [Recovered/Resolved]
  - Depression [Not Recovered/Not Resolved]

NARRATIVE: CASE EVENT DATE: 20211020
